FAERS Safety Report 4925547-0 (Version None)
Quarter: 2006Q1

REPORT INFORMATION
  Report Type: 
  Country: None (occurrence: None)
  Receive Date: 20060228
  Receipt Date: 20010109
  Transmission Date: 20060701
  Serious: No
  Sender: FDA-Public Use
  Company Number: US-GLAXOSMITHKLINE-A0136572A

PATIENT
  Age: 48 Year
  Sex: Female
  Weight: 76.8 kg

DRUGS (13)
  1. LAMICTAL [Suspect]
     Indication: BIPOLAR DISORDER
     Dosage: 75MG PER DAY
     Route: 048
     Dates: start: 20001114
  2. LITHIUM [Concomitant]
  3. NEURONTIN [Concomitant]
  4. ELAVIL [Concomitant]
  5. MELLARIL [Concomitant]
  6. KLONOPIN [Concomitant]
  7. LEXAPRO [Concomitant]
  8. NEXIUM [Concomitant]
  9. ESTROGEN [Concomitant]
  10. TYLENOL (CAPLET) [Concomitant]
  11. CELEBREX [Concomitant]
  12. ASPIRIN [Concomitant]
  13. IBUPROFEN [Concomitant]

REACTIONS (16)
  - ASTHENIA [None]
  - CONTUSION [None]
  - DEPRESSION [None]
  - FATIGUE [None]
  - HEADACHE [None]
  - HYPERSOMNIA [None]
  - INSOMNIA [None]
  - IRRITABILITY [None]
  - MANIA [None]
  - MUSCULOSKELETAL DISCOMFORT [None]
  - OBSESSIVE-COMPULSIVE DISORDER [None]
  - RASH [None]
  - RASH MACULAR [None]
  - SKIN EXFOLIATION [None]
  - SWELLING FACE [None]
  - VISUAL DISTURBANCE [None]
